FAERS Safety Report 5081101-4 (Version None)
Quarter: 2006Q3

REPORT INFORMATION
  Report Type: 
  Country: None (occurrence: None)
  Receive Date: 20060810
  Receipt Date: 20060801
  Transmission Date: 20061208
  Serious: Yes (Hospitalization)
  Sender: FDA-Public Use
  Company Number: 2006-04269

PATIENT
  Age: 57 Year
  Sex: Female

DRUGS (13)
  1. FERRLECIT [Suspect]
     Indication: ANAEMIA
     Dosage: 125 MG, DAILY, INTRAVENOUS
     Route: 042
     Dates: start: 20060711, end: 20060713
  2. WELLBUTRIN [Concomitant]
  3. PREMARIN [Concomitant]
  4. ESTROGEN PATCH [Concomitant]
  5. SYNTHROID [Concomitant]
  6. VITORIN [Concomitant]
  7. CYTOMEL [Concomitant]
  8. BUSPAR [Concomitant]
  9. FAMVIR 9FAMCICLOVIR) [Concomitant]
  10. VIRELON (POLIOMYELITIS VACCINE INACTIVATED) [Concomitant]
  11. PROTONIX [Concomitant]
  12. CORTEF [Concomitant]
  13. FLORINEF [Concomitant]

REACTIONS (7)
  - CELLULITIS [None]
  - DEEP VEIN THROMBOSIS [None]
  - INJECTION SITE DISCOMFORT [None]
  - INJECTION SITE ERYTHEMA [None]
  - INJECTION SITE PAIN [None]
  - INJECTION SITE SWELLING [None]
  - THROMBOPHLEBITIS [None]
